FAERS Safety Report 10029786 (Version 1)
Quarter: 2014Q1

REPORT INFORMATION
  Report Type: Spontaneous
  Country: US (occurrence: None)
  Receive Date: 20140319
  Receipt Date: 20140319
  Transmission Date: 20141002
  Serious: Yes (Other)
  Sender: FDA-Public Use
  Company Number: 2014AP001980

PATIENT
  Sex: Male

DRUGS (2)
  1. LEVETIRACETAM TABLETS [Suspect]
  2. DIVALPROEX SODIUM [Suspect]

REACTIONS (2)
  - Craniotomy [None]
  - Drug ineffective [None]
